FAERS Safety Report 6828459-0 (Version None)
Quarter: 2010Q3

REPORT INFORMATION
  Report Type: 
  Country: None (occurrence: None)
  Receive Date: 20100709
  Receipt Date: 20070212
  Transmission Date: 20110219
  Serious: No
  Sender: FDA-Public Use
  Company Number: US-PFIZER INC-2007012419

PATIENT
  Age: 51 Year
  Sex: Female

DRUGS (3)
  1. CHANTIX [Suspect]
     Indication: SMOKING CESSATION THERAPY
     Dates: start: 20070201
  2. DRUG, UNSPECIFIED [Concomitant]
  3. NICOTINE [Concomitant]

REACTIONS (1)
  - INSOMNIA [None]
